FAERS Safety Report 21065839 (Version 15)
Quarter: 2025Q2

REPORT INFORMATION
  Report Type: Spontaneous
  Country: IN (occurrence: IN)
  Receive Date: 20220711
  Receipt Date: 20250512
  Transmission Date: 20250717
  Serious: Yes (Other)
  Sender: PFIZER
  Company Number: IN-PFIZER INC-PV202200018537

PATIENT
  Age: 64 Year
  Sex: Male

DRUGS (5)
  1. LORLATINIB [Suspect]
     Active Substance: LORLATINIB
     Indication: Non-small cell lung cancer metastatic
     Dosage: 100 MG, 1X/DAY
     Route: 048
     Dates: start: 202009
  2. ROSUVASTATIN CALCIUM [Concomitant]
     Active Substance: ROSUVASTATIN CALCIUM
     Dosage: 40 MG, 1X/DAY
  3. ROSUVASTATIN CALCIUM [Concomitant]
     Active Substance: ROSUVASTATIN CALCIUM
     Dosage: 20 MG HS
  4. AUGMENTIN [Concomitant]
     Active Substance: AMOXICILLIN\CLAVULANATE POTASSIUM
     Dosage: 625 MG, 1X/DAY (FOR 7 DAYS)
  5. LETROZOLE [Concomitant]
     Active Substance: LETROZOLE
     Dosage: 500 MG, 1X/DAY (FOR 7 DAYS)

REACTIONS (18)
  - Aspartate aminotransferase increased [Unknown]
  - Biliary dilatation [Unknown]
  - Non-small cell lung cancer metastatic [Unknown]
  - Malignant neoplasm progression [Unknown]
  - Haemoglobin decreased [Unknown]
  - Vitamin A abnormal [Unknown]
  - Red blood cell sedimentation rate increased [Unknown]
  - Pleural effusion [Unknown]
  - Hepatic steatosis [Unknown]
  - Prostatomegaly [Unknown]
  - Low density lipoprotein increased [Unknown]
  - Blood triglycerides increased [Unknown]
  - Lung opacity [Unknown]
  - Hepatomegaly [Unknown]
  - Weight fluctuation [Unknown]
  - Atelectasis [Unknown]
  - Blood pressure systolic increased [Unknown]
  - Blood cholesterol increased [Unknown]

NARRATIVE: CASE EVENT DATE: 20220602
